FAERS Safety Report 6294570-9 (Version None)
Quarter: 2009Q3

REPORT INFORMATION
  Report Type: 
  Country: None (occurrence: None)
  Receive Date: 20090803
  Receipt Date: 20090709
  Transmission Date: 20100115
  Serious: Yes (Hospitalization, Other)
  Sender: FDA-Public Use
  Company Number: US-ASTRAZENECA-2009SE04478

PATIENT
  Age: 60 Year
  Sex: Male

DRUGS (3)
  1. LISINOPRIL [Suspect]
     Indication: HYPERTENSION
     Dates: start: 20040101
  2. LISINOPRIL [Interacting]
     Dates: start: 20040701
  3. LITHIUM [Interacting]
     Indication: BIPOLAR DISORDER

REACTIONS (7)
  - CONFUSIONAL STATE [None]
  - DIZZINESS [None]
  - DRUG INTERACTION [None]
  - FALL [None]
  - FATIGUE [None]
  - THERAPEUTIC AGENT TOXICITY [None]
  - TREMOR [None]
